FAERS Safety Report 21488343 (Version 4)
Quarter: 2024Q1

REPORT INFORMATION
  Report Type: Spontaneous
  Country: IT (occurrence: IT)
  Receive Date: 20221020
  Receipt Date: 20240118
  Transmission Date: 20240410
  Serious: Yes (Other)
  Sender: FDA-Public Use
  Company Number: IT-SUN PHARMACEUTICAL INDUSTRIES LTD-2022RR-360228

PATIENT
  Age: 65 Year
  Sex: Female

DRUGS (2)
  1. CITALOPRAM [Suspect]
     Active Substance: CITALOPRAM HYDROBROMIDE
     Indication: Depression
     Dosage: UNK
     Route: 065
  2. FLURAZEPAM HYDROCHLORIDE [Suspect]
     Active Substance: FLURAZEPAM HYDROCHLORIDE
     Indication: Insomnia
     Dosage: INTAKE FOR SELF-HARM OF 30CP OF 1MG (ONE WHOLE PACK).
     Route: 048
     Dates: start: 20220929, end: 20220929

REACTIONS (4)
  - Long QT syndrome [Recovering/Resolving]
  - Intentional self-injury [Recovering/Resolving]
  - Electrocardiogram QT prolonged [Recovering/Resolving]
  - Sopor [Recovering/Resolving]

NARRATIVE: CASE EVENT DATE: 20220921
